FAERS Safety Report 19660319 (Version 1)
Quarter: 2021Q3

REPORT INFORMATION
  Report Type: Spontaneous
  Country: US (occurrence: US)
  Receive Date: 20210804
  Receipt Date: 20210804
  Transmission Date: 20211014
  Serious: Yes (Other)
  Sender: FDA-Public Use
  Company Number: None

PATIENT
  Age: 57 Year
  Sex: Male
  Weight: 93.44 kg

DRUGS (5)
  1. PREGABALIN. [Suspect]
     Active Substance: PREGABALIN
     Indication: NEURALGIA
     Dosage: ?          QUANTITY:75MG DF DOSAGE FORM; 90 CAPSULES?
     Route: 048
  2. TIZANIDINE. [Suspect]
     Active Substance: TIZANIDINE
     Indication: NEURALGIA
     Dosage: ?OTHER FREQUENCY:2 TABLETS X  A DAY;?
     Route: 048
     Dates: start: 2017
  3. CALCIUM 600 + D3 [Concomitant]
  4. C?1000 [Concomitant]
  5. IRON [Concomitant]
     Active Substance: IRON

REACTIONS (3)
  - Loss of consciousness [None]
  - Seizure [None]
  - Fall [None]

NARRATIVE: CASE EVENT DATE: 2021
